FAERS Safety Report 8270123-8 (Version None)
Quarter: 2012Q2

REPORT INFORMATION
  Report Type: 
  Country: None (occurrence: None)
  Receive Date: 20120410
  Receipt Date: 20120403
  Transmission Date: 20120825
  Serious: No
  Sender: FDA-Public Use
  Company Number: PHHY2012US029975

PATIENT
  Age: 68 Year
  Sex: Female

DRUGS (12)
  1. LOMOTIL [Concomitant]
  2. MAGNESIUM [Concomitant]
     Dosage: 250 MG, UNK
     Route: 048
  3. CALTRATE 600 + VITAMIN D [Concomitant]
     Dosage: 1 DF, DAILY
     Route: 048
  4. ZOFRAN [Concomitant]
     Dosage: 8 MG, PRN
     Route: 048
  5. ALDACTONE [Concomitant]
     Dosage: 25 MG, Q12H
     Route: 048
  6. COUMADIN [Concomitant]
     Route: 048
  7. TASIGNA [Suspect]
     Indication: CHRONIC MYELOID LEUKAEMIA
     Dosage: 450 MG, DAILY
     Route: 048
     Dates: start: 20110601
  8. EDECRINE [Concomitant]
     Dosage: 25 MG, BID
     Route: 048
  9. TOPROL-XL [Concomitant]
     Dosage: 50 MG, TID
     Route: 048
  10. PARADEX [Concomitant]
  11. LABETALOL HCL [Concomitant]
     Dosage: 300 MG, BID
     Route: 048
  12. SYNTHROID [Concomitant]
     Route: 048

REACTIONS (1)
  - DYSPNOEA [None]
